FAERS Safety Report 9282500 (Version 1)
Quarter: 2013Q2

REPORT INFORMATION
  Report Type: Spontaneous
  Country: US (occurrence: US)
  Receive Date: 20130510
  Receipt Date: 20130510
  Transmission Date: 20140414
  Serious: No
  Sender: FDA-Public Use
  Company Number: US-B.I. PHARMACEUTICALS,INC./RIDGEFIELD-2013-BI-13071BP

PATIENT
  Sex: Female
  Weight: 57 kg

DRUGS (2)
  1. PRADAXA [Suspect]
     Indication: CARDIAC VALVE DISEASE
     Dosage: 150 MG
     Route: 048
     Dates: start: 2011
  2. PROAIR INHALER [Concomitant]
     Indication: CHRONIC OBSTRUCTIVE PULMONARY DISEASE
     Route: 055

REACTIONS (2)
  - Muscle spasms [Not Recovered/Not Resolved]
  - Macular degeneration [Not Recovered/Not Resolved]
